FAERS Safety Report 25588038 (Version 1)
Quarter: 2025Q3

REPORT INFORMATION
  Report Type: Spontaneous
  Country: EU (occurrence: EU)
  Receive Date: 20250722
  Receipt Date: 20250722
  Transmission Date: 20251020
  Serious: Yes (Life-Threatening, Other)
  Sender: CIPLA
  Company Number: EU-AFSSAPS-PB2025000786

PATIENT

DRUGS (1)
  1. RIVAROXABAN [Suspect]
     Active Substance: RIVAROXABAN
     Indication: Atrial fibrillation
     Dosage: 1 DOSAGE FORM, QD
     Route: 048
     Dates: end: 20250623

REACTIONS (2)
  - Shock haemorrhagic [Unknown]
  - Haemoperitoneum [Unknown]

NARRATIVE: CASE EVENT DATE: 20250623
